FAERS Safety Report 18887545 (Version 1)
Quarter: 2021Q1

REPORT INFORMATION
  Report Type: Report from Study
  Country: None (occurrence: CZ)
  Receive Date: 20210213
  Receipt Date: 20210213
  Transmission Date: 20210420
  Serious: Yes (Death, Congenital Anomaly, Other)
  Sender: FDA-Public Use
  Company Number: CZ-ABBVIE-21K-217-3767821-00

PATIENT
  Sex: Male
  Weight: 1.95 kg

DRUGS (1)
  1. HUMIRA [Suspect]
     Active Substance: ADALIMUMAB
     Indication: MATERNAL EXPOSURE TIMING UNSPECIFIED
     Route: 064

REACTIONS (5)
  - Foetal exposure during pregnancy [Unknown]
  - Congenital anomaly [Fatal]
  - Single functional kidney [Unknown]
  - Congenital heart valve incompetence [Unknown]
  - Cerebral haemorrhage [Unknown]
